FAERS Safety Report 6731007-7 (Version None)
Quarter: 2010Q2

REPORT INFORMATION
  Report Type: 
  Country: None (occurrence: None)
  Receive Date: 20100518
  Receipt Date: 20100506
  Transmission Date: 20101027
  Serious: Yes (Other)
  Sender: FDA-Public Use
  Company Number: GR-PFIZER INC-2010057471

PATIENT
  Sex: Female

DRUGS (1)
  1. SUNITINIB MALATE [Suspect]
     Indication: THYROID CANCER
     Route: 048

REACTIONS (1)
  - HAEMATOTOXICITY [None]
